FAERS Safety Report 23573765 (Version 3)
Quarter: 2024Q2

REPORT INFORMATION
  Report Type: Spontaneous
  Country: US (occurrence: US)
  Receive Date: 20240228
  Receipt Date: 20240408
  Transmission Date: 20240715
  Serious: No
  Sender: FDA-Public Use
  Company Number: US-BIOVITRUM-2023-US-020172

PATIENT
  Age: 19 Year
  Sex: Male

DRUGS (1)
  1. KINERET [Suspect]
     Active Substance: ANAKINRA
     Indication: Still^s disease
     Dosage: 100 MG DAILY
     Route: 058
     Dates: start: 20231115

REACTIONS (8)
  - Intentional product misuse [Not Recovered/Not Resolved]
  - Injection site discolouration [Recovered/Resolved]
  - Injection site pain [Unknown]
  - Product dose omission issue [Unknown]
  - General symptom [Unknown]
  - Hepatic enzyme increased [Unknown]
  - Viral infection [Unknown]
  - Skin reaction [Unknown]

NARRATIVE: CASE EVENT DATE: 20231115
